FAERS Safety Report 5609694-6 (Version None)
Quarter: 2008Q1

REPORT INFORMATION
  Report Type: 
  Country: None (occurrence: None)
  Receive Date: 20080131
  Receipt Date: 20070125
  Transmission Date: 20080703
  Serious: No
  Sender: FDA-Public Use
  Company Number: US-BAYER-200710284BCC

PATIENT
  Age: 62 Year
  Sex: Female
  Weight: 77 kg

DRUGS (3)
  1. ALEVE COLD AND SINUS [Suspect]
     Indication: NASOPHARYNGITIS
     Dosage: TOTAL DAILY DOSE: 220 MG  UNIT DOSE: 220 MG
     Route: 048
     Dates: start: 20070124
  2. TYLENOL [Suspect]
     Indication: NASAL CONGESTION
     Dates: start: 20070124
  3. AFRIN [Suspect]
     Indication: NASAL CONGESTION
     Route: 045
     Dates: start: 20070124

REACTIONS (2)
  - INSOMNIA [None]
  - NASAL CONGESTION [None]
